FAERS Safety Report 17605433 (Version 2)
Quarter: 2020Q2

REPORT INFORMATION
  Report Type: Spontaneous
  Country: AR (occurrence: AR)
  Receive Date: 20200331
  Receipt Date: 20200403
  Transmission Date: 20200713
  Serious: Yes (Other)
  Sender: FDA-Public Use
  Company Number: AR-PFIZER INC-2020131280

PATIENT
  Age: 43 Year
  Sex: Female

DRUGS (2)
  1. IBRANCE [Suspect]
     Active Substance: PALBOCICLIB
     Indication: BREAST CANCER METASTATIC
     Dosage: 125 MG, CYCLIC (DAILY, 3X1 SCHEME)
     Dates: start: 20190524
  2. LETROZOL [Concomitant]
     Active Substance: LETROZOLE

REACTIONS (6)
  - Urinary incontinence [Unknown]
  - Insomnia [Unknown]
  - Gait disturbance [Unknown]
  - Back pain [Unknown]
  - Diabetes mellitus [Unknown]
  - Spinal pain [Unknown]
